FAERS Safety Report 18986050 (Version 1)
Quarter: 2021Q1

REPORT INFORMATION
  Report Type: Spontaneous
  Country: GB (occurrence: GB)
  Receive Date: 20210309
  Receipt Date: 20210309
  Transmission Date: 20210420
  Serious: Yes (Life-Threatening, Other)
  Sender: FDA-Public Use
  Company Number: GB-ACCORD-219012

PATIENT

DRUGS (3)
  1. PREDNISOLONE. [Suspect]
     Active Substance: PREDNISOLONE
     Indication: ACUTE GRAFT VERSUS HOST DISEASE
     Dosage: UNK
  2. CICLOSPORIN [Suspect]
     Active Substance: CYCLOSPORINE
     Indication: ACUTE GRAFT VERSUS HOST DISEASE
     Dosage: UNK
  3. MYCOPHENOLIC ACID. [Suspect]
     Active Substance: MYCOPHENOLIC ACID
     Indication: ACUTE GRAFT VERSUS HOST DISEASE

REACTIONS (6)
  - Venoocclusive disease [Unknown]
  - Condition aggravated [Unknown]
  - Respiratory distress [Unknown]
  - Thrombotic microangiopathy [Unknown]
  - Hypertension [Unknown]
  - Graft versus host disease [Unknown]
